FAERS Safety Report 11079298 (Version 2)
Quarter: 2015Q2

REPORT INFORMATION
  Report Type: Spontaneous
  Country: AR (occurrence: AR)
  Receive Date: 20150430
  Receipt Date: 20150605
  Transmission Date: 20150821
  Serious: Yes (Life-Threatening, Hospitalization, Other)
  Sender: FDA-Public Use
  Company Number: AR-009507513-1504ARG023102

PATIENT
  Age: 58 Year
  Sex: Male

DRUGS (4)
  1. RIBAVIRIN. [Suspect]
     Active Substance: RIBAVIRIN
     Dosage: STRENGHT:12 CAPSULES, FREQUENCY: DAILY
     Route: 065
     Dates: start: 20150130, end: 20150404
  2. VICTRELIS [Suspect]
     Active Substance: BOCEPREVIR
     Dosage: 200 MG EVERY 8 HOURS (12 CAPSULES DAILY)
     Route: 048
     Dates: start: 20150227, end: 20150404
  3. INTERFERON (UNSPECIFIED) [Suspect]
     Active Substance: UNSPECIFIED INGREDIENT
     Dosage: UNK, WEEKLY
     Route: 065
     Dates: start: 20150130, end: 20150404
  4. DIURETIC (UNSPECIFIED) [Concomitant]
     Active Substance: UNSPECIFIED INGREDIENT
     Route: 065

REACTIONS (6)
  - Ascites [Recovered/Resolved]
  - Dyspnoea [Recovered/Resolved]
  - Burning sensation [Recovered/Resolved]
  - Seizure [Recovered/Resolved]
  - Rash macular [Recovered/Resolved]
  - Pruritus [Recovered/Resolved]

NARRATIVE: CASE EVENT DATE: 201502
